FAERS Safety Report 11875397 (Version 1)
Quarter: 2015Q4

REPORT INFORMATION
  Report Type: Spontaneous
  Country: US (occurrence: None)
  Receive Date: 20151228
  Receipt Date: 20151228
  Transmission Date: 20160305
  Serious: Yes (Other)
  Sender: FDA-Public Use
  Company Number: None

PATIENT
  Age: 50 Year
  Sex: Female

DRUGS (2)
  1. VIVITROL [Suspect]
     Active Substance: NALTREXONE
     Indication: ALCOHOLISM
     Route: 030
     Dates: start: 20151013, end: 20151129
  2. VIVITROL [Suspect]
     Active Substance: NALTREXONE
     Indication: DRUG DEPENDENCE
     Route: 030
     Dates: start: 20151013, end: 20151129

REACTIONS (5)
  - Arthralgia [None]
  - Sensory disturbance [None]
  - Dysstasia [None]
  - Impaired work ability [None]
  - Abasia [None]

NARRATIVE: CASE EVENT DATE: 20151129
